FAERS Safety Report 19037459 (Version 1)
Quarter: 2021Q1

REPORT INFORMATION
  Report Type: Spontaneous
  Country: GB (occurrence: GB)
  Receive Date: 20210322
  Receipt Date: 20210322
  Transmission Date: 20210420
  Serious: Yes (Other)
  Sender: FDA-Public Use
  Company Number: GB-DEXPHARM-20210342

PATIENT
  Age: 82 Year
  Sex: Female
  Weight: 78.6 kg

DRUGS (11)
  1. ALLOPURINOL. [Concomitant]
     Active Substance: ALLOPURINOL
  2. GABAPENTIN. [Concomitant]
     Active Substance: GABAPENTIN
  3. UMECLIDINIUM [Concomitant]
     Active Substance: UMECLIDINIUM BROMIDE
  4. OMEPRAZOLE. [Suspect]
     Active Substance: OMEPRAZOLE
     Indication: GASTROOESOPHAGEAL REFLUX DISEASE
     Dosage: MORNING
     Route: 048
     Dates: end: 20210218
  5. SALBUTAMOL [Concomitant]
     Active Substance: ALBUTEROL
  6. TEICOPLANIN [Concomitant]
     Active Substance: TEICOPLANIN
     Indication: INTERVERTEBRAL DISCITIS
     Route: 042
  7. APIXABAN [Concomitant]
     Active Substance: APIXABAN
  8. BUMETANIDE. [Interacting]
     Active Substance: BUMETANIDE
  9. ALFACALCIDOL [Concomitant]
     Active Substance: ALFACALCIDOL
  10. FERROUS SULFATE. [Concomitant]
     Active Substance: FERROUS SULFATE
  11. FOSTAIR [Concomitant]
     Active Substance: BECLOMETHASONE\FORMOTEROL

REACTIONS (2)
  - Hyponatraemia [Recovered/Resolved]
  - Drug interaction [Recovered/Resolved]

NARRATIVE: CASE EVENT DATE: 20210215
